FAERS Safety Report 5226901-2 (Version None)
Quarter: 2007Q1

REPORT INFORMATION
  Report Type: 
  Country: None (occurrence: None)
  Receive Date: 20070130
  Receipt Date: 20070116
  Transmission Date: 20070707
  Serious: Yes (Hospitalization)
  Sender: FDA-Public Use
  Company Number: MEDI-0005166

PATIENT
  Age: 5 Month
  Sex: Male

DRUGS (3)
  1. SYNAGIS [Suspect]
     Indication: ANTIVIRAL PROPHYLAXIS
     Dosage: 110 MG, INTRAMUSCULAR
     Route: 030
     Dates: start: 20061101, end: 20061101
  2. PENTACEL (HAEMOPHILUS B CONJUGATE VACCINE, DIPHTHERIA, PERUSSIS, TETAN [Concomitant]
  3. PREVNAR (PNEUMOCOCCAL CONJUGATE VACCINE) [Concomitant]

REACTIONS (1)
  - HYPERSENSITIVITY [None]
